FAERS Safety Report 15318450 (Version 9)
Quarter: 2019Q1

REPORT INFORMATION
  Report Type: Spontaneous
  Country: US (occurrence: US)
  Receive Date: 20180825
  Receipt Date: 20190204
  Transmission Date: 20190417
  Serious: Yes (Life-Threatening, Hospitalization, Other)
  Sender: FDA-Public Use
  Company Number: US-009507513-1808USA006994

PATIENT
  Sex: Female
  Weight: 56.24 kg

DRUGS (1)
  1. NEXPLANON [Suspect]
     Active Substance: ETONOGESTREL
     Indication: CONTRACEPTION
     Dosage: 1 DOSAGE FORM
     Route: 059
     Dates: start: 20151029, end: 20180815

REACTIONS (11)
  - Device embolisation [Recovered/Resolved]
  - Complication of device removal [Recovered/Resolved]
  - Neuralgia [Unknown]
  - Menstruation irregular [Unknown]
  - Device deployment issue [Recovered/Resolved]
  - Complication of device removal [Recovered/Resolved]
  - Device dislocation [Recovered/Resolved]
  - Complication of device removal [Recovered/Resolved]
  - Complication of device removal [Recovered/Resolved]
  - Surgery [Recovered/Resolved]
  - Complication associated with device [Recovered/Resolved]

NARRATIVE: CASE EVENT DATE: 20151029
